FAERS Safety Report 6185415-6 (Version None)
Quarter: 2009Q2

REPORT INFORMATION
  Report Type: 
  Country: None (occurrence: None)
  Receive Date: 20090511
  Receipt Date: 20090504
  Transmission Date: 20091009
  Serious: Yes (Life-Threatening, Hospitalization)
  Sender: FDA-Public Use
  Company Number: DE-BAYER-200919897GPV

PATIENT
  Age: 67 Year
  Sex: Female
  Weight: 99 kg

DRUGS (11)
  1. ACETYLSALICYLIC ACID [Suspect]
     Indication: ISCHAEMIC HEART DISEASE PROPHYLAXIS
     Route: 048
     Dates: start: 20000101
  2. LITHIUM ^APOGEPHA^ [Suspect]
     Indication: DEPRESSION
     Route: 048
     Dates: start: 20040101, end: 20081108
  3. FURANTHRIL [Suspect]
     Indication: HYPERTENSION
     Route: 048
     Dates: start: 20040101, end: 20081108
  4. KINZALKOMB [Suspect]
     Indication: HYPERTENSION
     Route: 048
     Dates: start: 20000101
  5. TRIMIPRAMINE MALEATE [Suspect]
     Indication: DEPRESSION
     Route: 048
     Dates: start: 20040101
  6. AKINETON [Concomitant]
     Indication: TREMOR
     Route: 048
     Dates: start: 20070101
  7. ALLOPURINOL [Concomitant]
     Indication: HYPERURICAEMIA
     Route: 048
     Dates: start: 20000101, end: 20081108
  8. BERLTHYROX [Concomitant]
     Indication: HYPOTHYROIDISM
     Route: 048
     Dates: start: 19990101
  9. BISOPROLOL FUMARATE [Concomitant]
     Indication: HYPERTENSION
     Route: 048
     Dates: start: 20000101
  10. NOVONORM [Concomitant]
     Indication: TYPE 2 DIABETES MELLITUS
     Route: 048
     Dates: start: 20080705
  11. PANTOZOL [Concomitant]
     Indication: PROPHYLAXIS AGAINST GASTROINTESTINAL ULCER
     Route: 048
     Dates: start: 20080705

REACTIONS (3)
  - DELIRIUM [None]
  - DISORIENTATION [None]
  - SPEECH DISORDER [None]
